FAERS Safety Report 22960694 (Version 2)
Quarter: 2024Q3

REPORT INFORMATION
  Report Type: Spontaneous
  Country: US (occurrence: US)
  Receive Date: 20230920
  Receipt Date: 20240917
  Transmission Date: 20241017
  Serious: No
  Sender: SAREPTA THERAPEUTICS
  Company Number: US-SAREPTA THERAPEUTICS INC.-SRP2023-003718

PATIENT
  Age: 16 Year
  Sex: Male
  Weight: 102.04 kg

DRUGS (2)
  1. VYONDYS 53 [Suspect]
     Active Substance: GOLODIRSEN
     Indication: Duchenne muscular dystrophy
     Dosage: 2400 MILLIGRAM, WEEKLY
     Route: 042
     Dates: start: 20211001, end: 20230804
  2. VYONDYS 53 [Suspect]
     Active Substance: GOLODIRSEN
     Dosage: 2400 MILLIGRAM, WEEKLY
     Route: 042
     Dates: start: 20230818, end: 20230818

REACTIONS (1)
  - Poor venous access [Recovered/Resolved]

NARRATIVE: CASE EVENT DATE: 20230811
